FAERS Safety Report 8770119 (Version 3)
Quarter: 2012Q4

REPORT INFORMATION
  Report Type: Report from Study
  Country: JP (occurrence: JP)
  Receive Date: 20120906
  Receipt Date: 20121109
  Transmission Date: 20130627
  Serious: Yes (Death, Life-Threatening, Other)
  Sender: FDA-Public Use
  Company Number: JP-PFIZER INC-2011079346

PATIENT
  Age: 62 Year
  Sex: Male
  Weight: 40 kg

DRUGS (25)
  1. CAMPTO [Suspect]
     Indication: COLORECTAL CANCER
     Dosage: 200 mg, 1x/day
     Route: 041
     Dates: start: 20101001, end: 20101001
  2. CAMPTO [Suspect]
     Dosage: 200 mg, once a day
     Route: 041
     Dates: start: 20101029, end: 20101029
  3. CAMPTO [Suspect]
     Dosage: 200 mg, once a day
     Route: 041
     Dates: start: 20101126, end: 20101126
  4. CAMPTO [Suspect]
     Dosage: 200 mg, once a day
     Route: 041
     Dates: start: 20101224, end: 20101224
  5. CAMPTO [Suspect]
     Dosage: 200 mg, once a day
     Route: 041
     Dates: start: 20110114, end: 20110114
  6. CAMPTO [Suspect]
     Dosage: 200 mg, once a day
     Dates: start: 20110204, end: 20110204
  7. CAMPTO [Suspect]
     Dosage: 200 mg, 1x/day
     Route: 041
     Dates: start: 20110225, end: 20110225
  8. 5-FU [Suspect]
     Indication: COLORECTAL CANCER
     Dosage: 500 mg, 1x/day
     Route: 040
     Dates: start: 20101001, end: 20110225
  9. 5-FU [Suspect]
     Dosage: 3250 mg, once in 2days
     Route: 041
     Dates: start: 20101001, end: 20101001
  10. 5-FU [Suspect]
     Dosage: 500 mg, 1x/day
     Route: 040
     Dates: start: 20101029, end: 20101029
  11. 5-FU [Suspect]
     Dosage: 2500 mg, once in 2days
     Route: 041
     Dates: start: 20101029, end: 20101029
  12. 5-FU [Suspect]
     Dosage: 500 mg, 1x/day
     Route: 040
     Dates: start: 20101126, end: 20101126
  13. 5-FU [Suspect]
     Dosage: 2500 mg, once in 2days
     Route: 041
     Dates: start: 20101126, end: 20101126
  14. 5-FU [Suspect]
     Dosage: 500 mg, 1x/day
     Route: 040
     Dates: start: 20101224, end: 20101224
  15. 5-FU [Suspect]
     Dosage: 2000 mg, once in 2days
     Route: 041
     Dates: start: 20101224, end: 20101224
  16. 5-FU [Suspect]
     Dosage: 500 mg, 1x/day
     Route: 040
     Dates: start: 20110114, end: 20110114
  17. 5-FU [Suspect]
     Dosage: 2000 mg, once in 2days
     Route: 041
     Dates: start: 20110114, end: 20110114
  18. 5-FU [Suspect]
     Dosage: 500 mg, 1x/day
     Route: 040
     Dates: start: 20110204, end: 20110204
  19. 5-FU [Suspect]
     Dosage: 2000 mg, once in 2days
     Route: 041
     Dates: start: 20110204, end: 20110204
  20. 5-FU [Suspect]
     Dosage: 250 mg, 1x/day
     Route: 040
     Dates: start: 20110225, end: 20110225
  21. 5-FU [Suspect]
     Dosage: 1500 mg, once in 2days
     Route: 041
     Dates: start: 20110225, end: 20110225
  22. VECTIBIX [Suspect]
     Indication: COLORECTAL CANCER
     Dosage: 300 mg, 1x/day
     Route: 041
     Dates: start: 20110225, end: 20110225
  23. CALCIUM LEVOFOLINATE [Concomitant]
     Indication: COLORECTAL CANCER
     Dosage: 275 mg/body
     Route: 041
     Dates: start: 20101001, end: 20110225
  24. GRAN [Concomitant]
     Dosage: UNK
     Dates: start: 20101015, end: 20110308
  25. PLATELETS, HUMAN BLOOD [Concomitant]
     Dosage: UNK
     Dates: start: 20110303, end: 20110304

REACTIONS (9)
  - Pancytopenia [Fatal]
  - Neutropenia [Fatal]
  - Leukopenia [Fatal]
  - Haemoglobin decreased [Fatal]
  - Thrombocytopenia [Fatal]
  - Diarrhoea [Recovering/Resolving]
  - Pyrexia [Not Recovered/Not Resolved]
  - Aspartate aminotransferase increased [Unknown]
  - Alanine aminotransferase increased [Unknown]
